FAERS Safety Report 24458356 (Version 2)
Quarter: 2024Q4

REPORT INFORMATION
  Report Type: Report from Study
  Country: GB (occurrence: GB)
  Receive Date: 20241018
  Receipt Date: 20241023
  Transmission Date: 20250115
  Serious: Yes (Hospitalization)
  Sender: ABBVIE
  Company Number: GB-ABBVIE-5950097

PATIENT
  Age: 71 Year
  Sex: Male
  Weight: 68 kg

DRUGS (4)
  1. CARBIDOPA\LEVODOPA [Suspect]
     Active Substance: CARBIDOPA\LEVODOPA
     Indication: Parkinson^s disease
     Dosage: 20MG/5MG, CONTINUOUS RATE: 7.5MLS/HR
     Route: 050
     Dates: end: 2024
  2. CARBIDOPA\LEVODOPA [Suspect]
     Active Substance: CARBIDOPA\LEVODOPA
     Dosage: MD: 4.0, CR: 3.0, ED: 2.0
     Route: 050
     Dates: start: 2024
  3. DIAZEPAM [Concomitant]
     Active Substance: DIAZEPAM
     Indication: Product used for unknown indication
     Dosage: AT NIGHT
  4. FLUCLOXACILLIN [Concomitant]
     Active Substance: FLUCLOXACILLIN
     Indication: Product used for unknown indication

REACTIONS (24)
  - Parkinson^s disease psychosis [Recovering/Resolving]
  - Cognitive disorder [Unknown]
  - Delirium [Not Recovered/Not Resolved]
  - Intentional medical device removal by patient [Not Recovered/Not Resolved]
  - Confusional state [Unknown]
  - Restlessness [Unknown]
  - Freezing phenomenon [Unknown]
  - Hypotension [Recovered/Resolved]
  - Memory impairment [Unknown]
  - Hallucination, visual [Not Recovered/Not Resolved]
  - Weight decreased [Unknown]
  - Stoma site erythema [Unknown]
  - Dyskinesia [Recovering/Resolving]
  - Obsessive-compulsive disorder [Unknown]
  - Fall [Unknown]
  - Abnormal dreams [Not Recovered/Not Resolved]
  - Device dislocation [Not Recovered/Not Resolved]
  - Fatigue [Unknown]
  - Embedded device [Unknown]
  - Stoma site infection [Unknown]
  - Dystonia [Unknown]
  - Stoma site discharge [Unknown]
  - Stoma site pain [Unknown]
  - Product dose omission issue [Unknown]

NARRATIVE: CASE EVENT DATE: 20240101
